FAERS Safety Report 12077626 (Version 3)
Quarter: 2016Q1

REPORT INFORMATION
  Report Type: Report from Study
  Country: US (occurrence: US)
  Receive Date: 20160215
  Receipt Date: 20160317
  Transmission Date: 20160526
  Serious: No
  Sender: FDA-Public Use
  Company Number: US-AMGEN-USASL2016015666

PATIENT
  Age: 38 Year
  Sex: Female

DRUGS (2)
  1. HUMIRA [Concomitant]
     Active Substance: ADALIMUMAB
     Dosage: UNK
  2. ENBREL [Suspect]
     Active Substance: ETANERCEPT
     Indication: PSORIASIS
     Dosage: 50 MG, QWK
     Route: 065
     Dates: start: 2015, end: 2015

REACTIONS (7)
  - Fibromyalgia [Unknown]
  - Rash generalised [Not Recovered/Not Resolved]
  - Scar [Unknown]
  - Drug effect incomplete [Unknown]
  - Rash erythematous [Not Recovered/Not Resolved]
  - Acne [Unknown]
  - Malaise [Unknown]
